FAERS Safety Report 6901621-4 (Version None)
Quarter: 2010Q3

REPORT INFORMATION
  Report Type: 
  Country: None (occurrence: None)
  Receive Date: 20100803
  Receipt Date: 20080229
  Transmission Date: 20110219
  Serious: No
  Sender: FDA-Public Use
  Company Number: US-PFIZER INC-2008020169

PATIENT
  Sex: Female

DRUGS (7)
  1. LYRICA [Suspect]
     Indication: FIBROMYALGIA
     Dates: start: 20080216
  2. AMITRIPTYLINE HYDROCHLORIDE [Concomitant]
  3. EFFEXOR XR [Concomitant]
  4. PRAVASTATIN [Concomitant]
  5. ALLERGY MEDICATION [Concomitant]
  6. PRILOSEC [Concomitant]
  7. GLIMEPIRIDE [Concomitant]

REACTIONS (3)
  - DIZZINESS [None]
  - HEADACHE [None]
  - INFLUENZA [None]
